FAERS Safety Report 5280337-7 (Version None)
Quarter: 2007Q1

REPORT INFORMATION
  Report Type: 
  Country: None (occurrence: None)
  Receive Date: 20061215
  Receipt Date: 20060503
  Transmission Date: 20070707
  Serious: Yes (Life-Threatening, Other)
  Sender: FDA-Public Use
  Company Number: HQWYE164904MAY06

PATIENT
  Sex: Female
  Weight: 54.48 kg

DRUGS (1)
  1. EFFEXOR XR [Suspect]
     Indication: HOT FLUSH
     Dosage: 37.5 MG 1X PER 1 TOT, ORAL
     Route: 048
     Dates: start: 20060426, end: 20060426

REACTIONS (11)
  - AGITATION [None]
  - ANXIETY [None]
  - BLOOD PRESSURE INCREASED [None]
  - HYPERHIDROSIS [None]
  - HYPOAESTHESIA [None]
  - NAUSEA [None]
  - PALPITATIONS [None]
  - PIGMENTATION DISORDER [None]
  - RESPIRATORY RATE INCREASED [None]
  - TONGUE DISORDER [None]
  - TREMOR [None]
